FAERS Safety Report 9185102 (Version 1)
Quarter: 2012Q4

REPORT INFORMATION
  Report Type: 
  Country: US (occurrence: US)
  Receive Date: 20121101
  Receipt Date: 20121101
  Transmission Date: 20130627
  Serious: Yes (Other)
  Sender: FDA-Public Use
  Company Number: US-PFIZER INC-2012271161

PATIENT
  Age: 52 Year
  Sex: Male
  Weight: 116 kg

DRUGS (6)
  1. EFFEXOR XR [Suspect]
     Indication: PANIC DISORDER
     Dosage: 150 mg daily
     Dates: start: 2012
  2. VENLAFAXINE HYDROCHLORIDE [Suspect]
     Indication: PANIC DISORDER
     Dosage: 150 mg, 1x/day
     Dates: start: 2010
  3. VENLAFAXINE HYDROCHLORIDE [Suspect]
     Dosage: 150 mg, 1x/day
     Dates: start: 2011
  4. VENLAFAXINE HYDROCHLORIDE [Suspect]
     Dosage: 150 mg, 1x/day
     Dates: start: 2012, end: 2012
  5. CLONAZEPAM [Concomitant]
     Indication: PANIC DISORDER
     Dosage: 0.5 mg, 2x/day
  6. ENALAPRIL [Concomitant]
     Indication: BLOOD PRESSURE ABNORMAL
     Dosage: 20 mg, daily

REACTIONS (4)
  - Memory impairment [Unknown]
  - Drug ineffective [Unknown]
  - Feeling abnormal [Unknown]
  - Weight increased [Unknown]
